FAERS Safety Report 24576856 (Version 1)
Quarter: 2024Q4

REPORT INFORMATION
  Report Type: Spontaneous
  Country: US (occurrence: US)
  Receive Date: 20241104
  Receipt Date: 20241104
  Transmission Date: 20250114
  Serious: Yes (Other)
  Sender: AMGEN
  Company Number: US-AMGEN-USASP2024213828

PATIENT
  Age: 8 Year
  Sex: Male

DRUGS (7)
  1. BEVACIZUMAB [Suspect]
     Active Substance: BEVACIZUMAB
     Indication: Glaucoma
     Dosage: UNK
  2. ATROPINE [Concomitant]
     Active Substance: ATROPINE
     Dosage: UNK, TID (THREE TIMES DAILY)
     Route: 061
  3. IOPIDINE [Concomitant]
     Active Substance: APRACLONIDINE HYDROCHLORIDE
     Dosage: UNK, TID (THREE TIMES DAILY)
     Route: 061
  4. TIMOLOL [Concomitant]
     Active Substance: TIMOLOL\TIMOLOL MALEATE
     Dosage: UNK, BID (TWICE DAILY)
     Route: 061
  5. LATANOPROST [Concomitant]
     Active Substance: LATANOPROST
     Dosage: UNK, QD (ONCE AT NIGHT)
     Route: 061
  6. MANNITOL [Concomitant]
     Active Substance: MANNITOL
     Dosage: 1 GRAM PER KILOGRAM, QD
     Route: 040
  7. ACETAZOLAMIDE [Concomitant]
     Active Substance: ACETAZOLAMIDE
     Dosage: 5 MILLIGRAM/KILOGRAM, TID (THREE TIMES DAILY)
     Route: 048

REACTIONS (4)
  - Vitreous haemorrhage [Unknown]
  - Tractional retinal detachment [Unknown]
  - Chorioretinal disorder [Unknown]
  - Off label use [Unknown]
